FAERS Safety Report 16847321 (Version 2)
Quarter: 2019Q3

REPORT INFORMATION
  Report Type: Report from Study
  Country: US (occurrence: US)
  Receive Date: 20190924
  Receipt Date: 20190926
  Transmission Date: 20191005
  Serious: Yes (Hospitalization)
  Sender: FDA-Public Use
  Company Number: US-ACTELION-A-US2019-195816

PATIENT
  Age: 77 Year
  Sex: Male

DRUGS (5)
  1. ESBRIET [Concomitant]
     Active Substance: PIRFENIDONE
  2. TADALAFIL. [Concomitant]
     Active Substance: TADALAFIL
  3. ELIQUIS [Concomitant]
     Active Substance: APIXABAN
  4. AMLODIPINE [Concomitant]
     Active Substance: AMLODIPINE BESYLATE
  5. OPSUMIT [Suspect]
     Active Substance: MACITENTAN
     Indication: PULMONARY HYPERTENSION
     Dosage: 10 MG, QD
     Route: 048
     Dates: start: 20190327

REACTIONS (2)
  - Gastrointestinal obstruction [Unknown]
  - Fluid retention [Unknown]

NARRATIVE: CASE EVENT DATE: 20190825
